FAERS Safety Report 6543846-6 (Version None)
Quarter: 2010Q1

REPORT INFORMATION
  Report Type: 
  Country: None (occurrence: None)
  Receive Date: 20100120
  Receipt Date: 20100115
  Transmission Date: 20100710
  Serious: Yes (Death)
  Sender: FDA-Public Use
  Company Number: US-JNJFOC-20100105334

PATIENT
  Age: 17 Year
  Sex: Female

DRUGS (6)
  1. ACETAMINOPHEN [Suspect]
     Route: 048
  2. ACETAMINOPHEN [Suspect]
     Indication: SUICIDE ATTEMPT
     Route: 048
  3. QUETIAPINE [Concomitant]
  4. VENLAFAXINE [Concomitant]
  5. ESCITALOPRAM [Concomitant]
  6. LORAZEPAM [Concomitant]

REACTIONS (3)
  - BRAIN HERNIATION [None]
  - DRUG TOXICITY [None]
  - HEPATIC FAILURE [None]
